FAERS Safety Report 23654985 (Version 1)
Quarter: 2024Q1

REPORT INFORMATION
  Report Type: Spontaneous
  Country: US (occurrence: US)
  Receive Date: 20240320
  Receipt Date: 20240320
  Transmission Date: 20240410
  Serious: Yes (Hospitalization, Other)
  Sender: FDA-Public Use
  Company Number: US-PFIZER INC-202400067696

PATIENT
  Age: 66 Year
  Sex: Female

DRUGS (1)
  1. RUXIENCE [Suspect]
     Active Substance: RITUXIMAB-PVVR
     Indication: Autoimmune haemolytic anaemia
     Dosage: UNK
     Dates: start: 202310

REACTIONS (4)
  - Haemoglobin decreased [Unknown]
  - Pruritus [Unknown]
  - Chills [Unknown]
  - Off label use [Unknown]

NARRATIVE: CASE EVENT DATE: 20231001
